FAERS Safety Report 24218237 (Version 1)
Quarter: 2024Q3

REPORT INFORMATION
  Report Type: Spontaneous
  Country: US (occurrence: US)
  Receive Date: 20240816
  Receipt Date: 20240816
  Transmission Date: 20241017
  Serious: No
  Sender: BIOVITRUM
  Company Number: US-BIOVITRUM-2024-US-010918

PATIENT
  Age: 42 Year
  Sex: Female

DRUGS (3)
  1. KINERET [Suspect]
     Active Substance: ANAKINRA
     Indication: Still^s disease
     Dosage: DAILY
     Route: 058
  2. MYOFORTIC [Concomitant]
     Indication: Product used for unknown indication
  3. PLAQUANIL [Concomitant]
     Indication: Product used for unknown indication

REACTIONS (3)
  - Hypertension [Unknown]
  - Headache [Unknown]
  - Off label use [Not Recovered/Not Resolved]
